FAERS Safety Report 6564350-5 (Version None)
Quarter: 2010Q1

REPORT INFORMATION
  Report Type: 
  Country: None (occurrence: None)
  Receive Date: 20100201
  Receipt Date: 20100122
  Transmission Date: 20100710
  Serious: Yes (Hospitalization, Other)
  Sender: FDA-Public Use
  Company Number: FR-JNJFOC-20100108482

PATIENT
  Age: 89 Year
  Sex: Female

DRUGS (6)
  1. TAVANIC [Suspect]
     Indication: LUNG INFECTION
     Route: 048
     Dates: start: 20091125, end: 20091130
  2. ROCEPHIN [Suspect]
     Indication: LUNG INFECTION
     Route: 042
     Dates: start: 20091117, end: 20091130
  3. SPIRAMYCINE [Suspect]
     Indication: DRUG USE FOR UNKNOWN INDICATION
     Route: 065
     Dates: start: 20091129, end: 20091130
  4. AMIKACIN [Suspect]
     Indication: DRUG USE FOR UNKNOWN INDICATION
     Route: 065
     Dates: start: 20091130
  5. CEFTAZIDIME [Suspect]
     Indication: DRUG USE FOR UNKNOWN INDICATION
     Route: 065
     Dates: start: 20091130
  6. TEICOPLANIN [Concomitant]
     Route: 065

REACTIONS (5)
  - AGRANULOCYTOSIS [None]
  - APLASIA [None]
  - BONE MARROW TOXICITY [None]
  - LYMPHOPENIA [None]
  - URTICARIA [None]
